FAERS Safety Report 23865625 (Version 1)
Quarter: 2024Q2

REPORT INFORMATION
  Report Type: Spontaneous
  Country: CN (occurrence: CN)
  Receive Date: 20240517
  Receipt Date: 20240517
  Transmission Date: 20240715
  Serious: Yes (Hospitalization, Other)
  Sender: FDA-Public Use
  Company Number: CN-BAYER-2024A070843

PATIENT
  Age: 78 Year
  Sex: Male
  Weight: 74 kg

DRUGS (1)
  1. XARELTO [Suspect]
     Active Substance: RIVAROXABAN
     Indication: Atrial fibrillation
     Dosage: QD
     Route: 048
     Dates: start: 20240315, end: 20240317

REACTIONS (7)
  - Haematuria [Recovered/Resolved]
  - Renal atrophy [Unknown]
  - Nephrocalcinosis [Unknown]
  - Nephrolithiasis [Unknown]
  - Arrhythmia [Unknown]
  - Benign prostatic hyperplasia [Unknown]
  - Heart sounds abnormal [Unknown]

NARRATIVE: CASE EVENT DATE: 20240317
